FAERS Safety Report 5915012-6 (Version None)
Quarter: 2008Q4

REPORT INFORMATION
  Report Type: 
  Country: None (occurrence: None)
  Receive Date: 20081008
  Receipt Date: 20081002
  Transmission Date: 20090506
  Serious: Yes (Life-Threatening, Hospitalization)
  Sender: FDA-Public Use
  Company Number: 2008-184696-NL

PATIENT
  Age: 63 Year
  Sex: Male

DRUGS (13)
  1. ROCURONIUM BROMIDE [Suspect]
     Indication: INDUCTION AND MAINTENANCE OF ANAESTHESIA
     Dosage: 50 MG ONCE/20 MG ONCE/20 MG ONCE/10 MG ONCE/10 MG ONCE INTRAVENOUS BOLUS
     Route: 040
     Dates: start: 20080929, end: 20080929
  2. ROCURONIUM BROMIDE [Suspect]
     Indication: INDUCTION AND MAINTENANCE OF ANAESTHESIA
     Dosage: 50 MG ONCE/20 MG ONCE/20 MG ONCE/10 MG ONCE/10 MG ONCE INTRAVENOUS BOLUS
     Route: 040
     Dates: start: 20080929, end: 20080929
  3. ROCURONIUM BROMIDE [Suspect]
     Indication: INDUCTION AND MAINTENANCE OF ANAESTHESIA
     Dosage: 50 MG ONCE/20 MG ONCE/20 MG ONCE/10 MG ONCE/10 MG ONCE INTRAVENOUS BOLUS
     Route: 040
     Dates: start: 20080929, end: 20080929
  4. ROCURONIUM BROMIDE [Suspect]
     Indication: INDUCTION AND MAINTENANCE OF ANAESTHESIA
     Dosage: 50 MG ONCE/20 MG ONCE/20 MG ONCE/10 MG ONCE/10 MG ONCE INTRAVENOUS BOLUS
     Route: 040
     Dates: start: 20080929, end: 20080929
  5. ROCURONIUM BROMIDE [Suspect]
     Indication: INDUCTION AND MAINTENANCE OF ANAESTHESIA
     Dosage: 50 MG ONCE/20 MG ONCE/20 MG ONCE/10 MG ONCE/10 MG ONCE INTRAVENOUS BOLUS
     Route: 040
     Dates: start: 20080929, end: 20080929
  6. FENTANYL CITRATE [Concomitant]
  7. PROPOFOL [Concomitant]
  8. SEVOFLURANE [Concomitant]
  9. HEPARIN [Concomitant]
  10. NORADRENALINE [Concomitant]
  11. ACETYLSALICYLIC ACID SRT [Concomitant]
  12. ACETYLSALICYLIC ACID SRT [Concomitant]
  13. ENOXAPARIN SODIUM [Concomitant]

REACTIONS (4)
  - BRONCHIAL OBSTRUCTION [None]
  - CIRCULATORY COLLAPSE [None]
  - PROCEDURAL COMPLICATION [None]
  - URTICARIA [None]
